FAERS Safety Report 5656055-X (Version None)
Quarter: 2008Q1

REPORT INFORMATION
  Report Type: 
  Country: None (occurrence: None)
  Receive Date: 20080307
  Receipt Date: 20080225
  Transmission Date: 20080703
  Serious: Yes (Other)
  Sender: FDA-Public Use
  Company Number: GB-PFIZER INC-2008019237

PATIENT
  Sex: Male

DRUGS (5)
  1. CHANTIX [Suspect]
     Indication: SMOKING CESSATION THERAPY
     Route: 048
     Dates: start: 20080203, end: 20080207
  2. ARIPIPRAZOLE [Concomitant]
     Indication: SCHIZOPHRENIA, PARANOID TYPE
     Route: 048
  3. ARIPIPRAZOLE [Concomitant]
     Indication: PSYCHOTIC DISORDER
  4. CITALOPRAM HYDROBROMIDE [Concomitant]
     Indication: SCHIZOPHRENIA, PARANOID TYPE
     Route: 048
  5. CITALOPRAM HYDROBROMIDE [Concomitant]
     Indication: PSYCHOTIC DISORDER

REACTIONS (6)
  - BURNING SENSATION [None]
  - DEPRESSION [None]
  - IRRITABILITY [None]
  - MENTAL IMPAIRMENT [None]
  - MOOD ALTERED [None]
  - RESTLESSNESS [None]
